FAERS Safety Report 5688977-8 (Version None)
Quarter: 2008Q1

REPORT INFORMATION
  Report Type: 
  Country: None (occurrence: None)
  Receive Date: 20080331
  Receipt Date: 20080321
  Transmission Date: 20080703
  Serious: Yes (Other)
  Sender: FDA-Public Use
  Company Number: A0625915A

PATIENT
  Age: 60 Year
  Sex: Male

DRUGS (25)
  1. AVANDIA [Suspect]
     Dosage: 4MG TWICE PER DAY
     Route: 048
     Dates: start: 20060101
  2. AVANDARYL [Suspect]
     Dosage: 2TABS PER DAY
     Route: 048
     Dates: start: 20050101, end: 20050101
  3. ACTOS [Suspect]
     Route: 048
  4. AMARYL [Concomitant]
  5. INSULIN [Concomitant]
  6. METFORMIN HCL [Concomitant]
  7. LEVITRA [Concomitant]
  8. CRESTOR [Concomitant]
  9. PRILOSEC [Concomitant]
  10. ZESTRIL [Concomitant]
  11. PLAVIX [Concomitant]
  12. LASIX [Concomitant]
  13. SPIRONOLACTONE [Concomitant]
  14. AZITHROMYCIN [Concomitant]
  15. TRAMADOL HCL [Concomitant]
  16. NITROSTAT [Concomitant]
  17. ASPIRIN [Concomitant]
  18. FLAXSEED [Concomitant]
  19. ASCORBIC ACID [Concomitant]
  20. VITAMIN B COMPLEX CAP [Concomitant]
  21. CO Q10 [Concomitant]
  22. BILBERRY [Concomitant]
  23. CENTRUM SILVER [Concomitant]
  24. VITAMIN E [Concomitant]
  25. CITRUCEL [Concomitant]

REACTIONS (3)
  - CARDIAC FAILURE CONGESTIVE [None]
  - DYSPNOEA EXERTIONAL [None]
  - OEDEMA [None]
